FAERS Safety Report 6335430-4 (Version None)
Quarter: 2009Q3

REPORT INFORMATION
  Report Type: 
  Country: None (occurrence: None)
  Receive Date: 20090831
  Receipt Date: 20090828
  Transmission Date: 20100115
  Serious: Yes (Life-Threatening, Other)
  Sender: FDA-Public Use
  Company Number: PHHY2009JP29256

PATIENT
  Age: 42 Year
  Sex: Male

DRUGS (4)
  1. TEGRETOL [Suspect]
     Indication: STATUS EPILEPTICUS
     Dosage: UNK
     Route: 048
     Dates: end: 20090710
  2. PHENOBARBITAL TAB [Concomitant]
     Route: 048
  3. PHENYTOIN [Concomitant]
     Route: 048
  4. DIPRIVAN [Concomitant]

REACTIONS (11)
  - APPARENT DEATH [None]
  - DERMATITIS [None]
  - DIALYSIS [None]
  - DRUG HYPERSENSITIVITY [None]
  - DRUG RASH WITH EOSINOPHILIA AND SYSTEMIC SYMPTOMS [None]
  - DYSPNOEA [None]
  - HEPATIC FUNCTION ABNORMAL [None]
  - PYREXIA [None]
  - RENAL IMPAIRMENT [None]
  - SKIN EXFOLIATION [None]
  - STEVENS-JOHNSON SYNDROME [None]
